FAERS Safety Report 6033118-0 (Version None)
Quarter: 2009Q1

REPORT INFORMATION
  Report Type: 
  Country: None (occurrence: None)
  Receive Date: 20090109
  Receipt Date: 20081230
  Transmission Date: 20090719
  Serious: Yes (Death, Other)
  Sender: FDA-Public Use
  Company Number: US-BAYER-200910406GPV

PATIENT
  Age: 14 Year
  Sex: Male

DRUGS (5)
  1. FLUDARABINE PHOSPHATE [Suspect]
     Indication: BONE MARROW TRANSPLANT
     Route: 065
  2. MELPHALAN [Suspect]
     Indication: BONE MARROW TRANSPLANT
     Route: 065
  3. THIOTEPA [Suspect]
     Indication: BONE MARROW TRANSPLANT
     Route: 065
  4. METHOTREXATE [Concomitant]
     Indication: ACUTE LYMPHOCYTIC LEUKAEMIA RECURRENT
     Route: 037
  5. CLOFARABINE [Concomitant]
     Indication: ACUTE LYMPHOCYTIC LEUKAEMIA RECURRENT
     Route: 065

REACTIONS (4)
  - AXONAL NEUROPATHY [None]
  - CARDIAC ARREST [None]
  - LEUKOENCEPHALOPATHY [None]
  - MYELITIS TRANSVERSE [None]
